FAERS Safety Report 19169070 (Version 1)
Quarter: 2021Q2

REPORT INFORMATION
  Report Type: Spontaneous
  Country: US (occurrence: US)
  Receive Date: 20210422
  Receipt Date: 20210422
  Transmission Date: 20210717
  Serious: No
  Sender: FDA-Public Use
  Company Number: US-KYOWAKIRIN-2021BKK006125

PATIENT

DRUGS (1)
  1. SANCUSO [Suspect]
     Active Substance: GRANISETRON
     Indication: NAUSEA
     Dosage: 1 PATCH EVERY 7 DAYS
     Route: 065

REACTIONS (6)
  - Skin discolouration [Unknown]
  - Application site irritation [Unknown]
  - Application site dryness [Unknown]
  - Application site erosion [Unknown]
  - Application site erythema [Unknown]
  - Product use in unapproved indication [Not Recovered/Not Resolved]
